FAERS Safety Report 7989193-7 (Version None)
Quarter: 2011Q4

REPORT INFORMATION
  Report Type: 
  Country: None (occurrence: None)
  Receive Date: 20111219
  Receipt Date: 20111212
  Transmission Date: 20120403
  Serious: Yes (Other)
  Sender: FDA-Public Use
  Company Number: US-JNJFOC-20111205744

PATIENT
  Age: 61 Year
  Sex: Female

DRUGS (11)
  1. NICOTINE [Concomitant]
     Route: 065
  2. LISINOPRIL [Concomitant]
     Route: 065
  3. TEMAZEPAM [Concomitant]
     Route: 065
  4. OXYBUTYNIN [Concomitant]
     Route: 065
  5. AMPICILLIN [Concomitant]
     Route: 065
  6. METHADONE HCL [Concomitant]
     Route: 065
  7. ACETAMINOPHEN [Concomitant]
     Route: 065
  8. PHENAZOPYRIDINE HCL TAB [Concomitant]
     Route: 065
  9. ONDANSETRON [Concomitant]
     Route: 065
  10. LEVAQUIN [Suspect]
     Indication: PREMEDICATION
     Route: 065
  11. FLOMAX [Concomitant]
     Route: 065

REACTIONS (3)
  - INAPPROPRIATE SCHEDULE OF DRUG ADMINISTRATION [None]
  - CONVULSION [None]
  - OVERDOSE [None]
